FAERS Safety Report 6477355-X (Version None)
Quarter: 2009Q4

REPORT INFORMATION
  Report Type: 
  Country: None (occurrence: None)
  Receive Date: 20091207
  Receipt Date: 20091124
  Transmission Date: 20100525
  Serious: Yes (Other)
  Sender: FDA-Public Use
  Company Number: RU-AMGEN-UK377978

PATIENT

DRUGS (3)
  1. NEUPOGEN [Suspect]
     Indication: CHEMOTHERAPY
     Route: 058
  2. FILGRASTIM [Suspect]
     Route: 058
  3. UNSPECIFIED ANTINEOPLASTIC AGENT [Concomitant]

REACTIONS (3)
  - BONE PAIN [None]
  - MYALGIA [None]
  - RESPIRATORY DISTRESS [None]
